FAERS Safety Report 8832272 (Version 1)
Quarter: 2012Q4

REPORT INFORMATION
  Report Type: 
  Country: US (occurrence: US)
  Receive Date: 20121009
  Receipt Date: 20121009
  Transmission Date: 20130627
  Serious: No
  Sender: FDA-Public Use
  Company Number: US-009507513-1210USA002486

PATIENT
  Sex: Female

DRUGS (2)
  1. NUVARING [Suspect]
     Indication: CONTRACEPTION
     Dosage: 0.015/0.12mg, unk
     Route: 067
  2. ANTIMICROBIAL (UNSPECIFIED) [Concomitant]

REACTIONS (1)
  - Unintended pregnancy [Unknown]
